FAERS Safety Report 5196205-5 (Version None)
Quarter: 2007Q1

REPORT INFORMATION
  Report Type: 
  Country: None (occurrence: None)
  Receive Date: 20070102
  Receipt Date: 20061221
  Transmission Date: 20070707
  Serious: Yes (Hospitalization)
  Sender: FDA-Public Use
  Company Number: US-PFIZER INC-2005063918

PATIENT
  Sex: Female
  Weight: 93.4 kg

DRUGS (9)
  1. SUTENT [Suspect]
     Indication: GASTROINTESTINAL STROMAL TUMOUR
     Route: 048
     Dates: start: 20040630, end: 20040727
  2. SUTENT [Suspect]
     Route: 048
     Dates: start: 20040811, end: 20050422
  3. SUTENT [Suspect]
     Route: 048
  4. LISINOPRIL [Suspect]
     Indication: HYPERTENSION
     Route: 048
     Dates: start: 20031223, end: 20050423
  5. SYNTHROID [Concomitant]
     Indication: HYPOTHYROIDISM
     Route: 048
  6. ARANESP [Concomitant]
     Indication: IRON DEFICIENCY ANAEMIA
     Route: 048
     Dates: start: 20031101
  7. PROZAC [Concomitant]
     Route: 048
     Dates: start: 20030101
  8. HYOSCYAMINE [Concomitant]
     Route: 048
     Dates: start: 20040601
  9. CYANOCOBALAMIN [Concomitant]
     Route: 030
     Dates: start: 20040727

REACTIONS (4)
  - ANGIOEDEMA [None]
  - DRUG HYPERSENSITIVITY [None]
  - HYPERTENSIVE CRISIS [None]
  - REACTION TO DRUG EXCIPIENTS [None]
